FAERS Safety Report 8560903-3 (Version None)
Quarter: 2012Q3

REPORT INFORMATION
  Report Type: 
  Country: None (occurrence: None)
  Receive Date: 20120802
  Receipt Date: 20120720
  Transmission Date: 20120928
  Serious: Yes (Other)
  Sender: FDA-Public Use
  Company Number: JP-009507513-2012SP036764

PATIENT

DRUGS (19)
  1. MUCOSTA [Concomitant]
     Dosage: 100MG/DAY, AS NEEDED.
     Route: 048
  2. PEG-INTRON [Suspect]
     Dosage: 1.2MCG/KG/WEEK
     Route: 058
     Dates: start: 20120528
  3. ANTEBATE [Concomitant]
     Indication: PROPHYLAXIS
     Dosage: TWICE/DAY
     Route: 061
     Dates: end: 20120604
  4. ANTIVIRAL (UNSPECIFIED) [Suspect]
     Indication: HEPATITIS C
     Dosage: 2250 MG, QD
     Route: 048
     Dates: start: 20120514, end: 20120519
  5. MAGLAX (MAGNESIUM OXIDE) [Concomitant]
     Route: 048
     Dates: start: 20120606, end: 20120606
  6. PEG-INTRON [Suspect]
     Dosage: 1.5MCG/KG/WEEK
     Route: 058
     Dates: start: 20120514, end: 20120521
  7. TELAVIC [Suspect]
     Indication: HEPATITIS C
     Route: 048
     Dates: start: 20120514, end: 20120520
  8. ADALAT CC [Concomitant]
     Indication: HYPERTENSION
     Route: 048
     Dates: end: 20120612
  9. NEUROTROPIN [Concomitant]
     Indication: SPINAL COLUMN STENOSIS
     Route: 048
     Dates: end: 20120611
  10. ESTAZOLAM [Concomitant]
     Indication: INSOMNIA
     Route: 048
     Dates: end: 20120601
  11. ETODOLAC [Concomitant]
     Indication: SPINAL COLUMN STENOSIS
     Route: 048
     Dates: end: 20120606
  12. LAXOBERON [Concomitant]
     Indication: CONSTIPATION
     Route: 050
  13. PEG-INTRON [Suspect]
     Indication: HEPATITIS C
     Dosage: UNK UNK, UNKNOWN
     Route: 058
     Dates: start: 20120514
  14. REBETOL [Suspect]
     Indication: HEPATITIS C
     Dosage: UNK UNK, UNKNOWN
     Route: 048
     Dates: start: 20120514
  15. LIDOMEX [Concomitant]
     Indication: PROPHYLAXIS
     Dosage: TWICE/DAY
     Route: 061
     Dates: end: 20120604
  16. LOXONIN [Concomitant]
     Indication: PROPHYLAXIS
     Dosage: 60MG/DAY, AS NEEDED.
     Route: 048
  17. ALLOPURINOL [Concomitant]
     Indication: PROPHYLAXIS
     Route: 048
     Dates: start: 20120518, end: 20120529
  18. MUCOSTA [Concomitant]
     Indication: PROPHYLAXIS
     Route: 048
  19. MAGLAX (MAGNESIUM OXIDE) [Concomitant]
     Indication: CONSTIPATION
     Route: 048
     Dates: start: 20120514

REACTIONS (1)
  - RASH [None]
